FAERS Safety Report 5507141-6 (Version None)
Quarter: 2007Q4

REPORT INFORMATION
  Report Type: 
  Country: None (occurrence: None)
  Receive Date: 20071102
  Receipt Date: 20071026
  Transmission Date: 20080405
  Serious: Yes (Death, Hospitalization)
  Sender: FDA-Public Use
  Company Number: CLOF-10727

PATIENT
  Age: 65 Year
  Sex: Female
  Weight: 136.9 kg

DRUGS (39)
  1. CLOFARABINE. MFR:  GENZYME [Suspect]
     Indication: ACUTE MYELOID LEUKAEMIA
     Dosage: 94 MG QD X 3 IV
     Route: 042
     Dates: start: 20071006, end: 20071008
  2. CLOFARABINE. MFR:  GENZYME [Suspect]
     Indication: ACUTE MYELOID LEUKAEMIA
     Dosage: 70 MG QD IV
     Route: 042
     Dates: start: 20071009, end: 20071010
  3. CYTARABINE [Suspect]
     Indication: ACUTE MYELOID LEUKAEMIA
     Dosage: 4700 MG QD X 3 IV
     Route: 042
     Dates: start: 20071006, end: 20071008
  4. CYTARABINE [Suspect]
     Indication: ACUTE MYELOID LEUKAEMIA
     Dosage: 3525 MG QD IV
     Route: 042
     Dates: start: 20071009, end: 20071010
  5. QUINAPRIL HCL [Concomitant]
  6. METOPROLOL TARTRATE [Concomitant]
  7. HYDROCHLOROTHIAZIDE [Concomitant]
  8. LORAZEPAM [Concomitant]
  9. PANTOPRAZOLE SODIUM [Concomitant]
  10. MOXIFLOXACIN HCL [Concomitant]
  11. FLUCONAZOLE [Concomitant]
  12. ACYCLOVIR [Concomitant]
  13. ROPINIROLE HCL [Concomitant]
  14. CALCIUM POLYCARBOPHIL [Concomitant]
  15. METRONIDAZOLE [Concomitant]
  16. OXYCODONE HCL [Concomitant]
  17. HEPARIN [Concomitant]
  18. DILTIAZEM HCL [Concomitant]
  19. ACETAMINOPHEN [Concomitant]
  20. DIPHENHYDRAMINE HCL [Concomitant]
  21. HYDROCORTISONE [Concomitant]
  22. PREDNISOLONE ACETATE [Concomitant]
  23. POLYVINYL ALCOHOL [Concomitant]
  24. POTASSIUM CHLORIDE [Concomitant]
  25. OXYCODONE HCL [Concomitant]
  26. ZOLPIDEM TARTRATE [Concomitant]
  27. METAXALONE [Concomitant]
  28. PROMETHAZINE [Concomitant]
  29. OXY PLUS ALOE VERA [Concomitant]
  30. SUMATRIPTAN SUCCINATE [Concomitant]
  31. HYDROXTZINE [Concomitant]
  32. AMIODARONE HCL [Concomitant]
  33. ONDANSETRON [Concomitant]
  34. OCTREOTIDE ACETATE [Concomitant]
  35. CEFEPIME [Concomitant]
  36. DOPAMINE HCL [Concomitant]
  37. PHENYLEPHRINE [Concomitant]
  38. NOREPINEPHRINE [Concomitant]
  39. FLUCONAZOLE [Concomitant]

REACTIONS (20)
  - ATRIAL FIBRILLATION [None]
  - ATRIAL FLUTTER [None]
  - BLOOD THYROID STIMULATING HORMONE INCREASED [None]
  - BLOOD URIC ACID INCREASED [None]
  - DIARRHOEA HAEMORRHAGIC [None]
  - HAEMODIALYSIS [None]
  - HEPATIC FAILURE [None]
  - HEPATOSPLENOMEGALY [None]
  - HYPOTENSION [None]
  - ISCHAEMIC HEPATITIS [None]
  - LUNG INFECTION [None]
  - METABOLIC ACIDOSIS [None]
  - MULTI-ORGAN FAILURE [None]
  - PANCYTOPENIA [None]
  - PLEURAL EFFUSION [None]
  - PULMONARY OEDEMA [None]
  - REFUSAL OF TREATMENT BY RELATIVE [None]
  - RENAL FAILURE ACUTE [None]
  - SUPRAVENTRICULAR TACHYCARDIA [None]
  - TACHYCARDIA [None]
